FAERS Safety Report 6433412-5 (Version None)
Quarter: 2009Q4

REPORT INFORMATION
  Report Type: 
  Country: None (occurrence: None)
  Receive Date: 20091106
  Receipt Date: 20091106
  Transmission Date: 20100525
  Serious: Yes (Other)
  Sender: FDA-Public Use
  Company Number: None

PATIENT
  Age: 59 Year
  Weight: 104.3273 kg

DRUGS (4)
  1. LEVAQUIN [Suspect]
     Indication: PERIODONTAL OPERATION
     Dosage: ONE TABLET ONCE A DAY PO
     Route: 048
     Dates: start: 20091023, end: 20091102
  2. CYMBALTA [Concomitant]
  3. IBUPROFEN [Concomitant]
  4. DOXYCYLINE [Concomitant]

REACTIONS (2)
  - ARTHRALGIA [None]
  - TRIGGER FINGER [None]
